FAERS Safety Report 4653475-7 (Version None)
Quarter: 2005Q2

REPORT INFORMATION
  Report Type: 
  Country: None (occurrence: None)
  Receive Date: 20050505
  Receipt Date: 20050426
  Transmission Date: 20051028
  Serious: Yes (Other)
  Sender: FDA-Public Use
  Company Number: GB-GLAXOSMITHKLINE-B0379382A

PATIENT
  Age: 14 Year
  Sex: Male

DRUGS (3)
  1. RANITIDINE [Suspect]
  2. PROPULSID [Concomitant]
  3. OMEPRAZOLE [Concomitant]

REACTIONS (1)
  - FRACTURE [None]
